FAERS Safety Report 6150263-X (Version None)
Quarter: 2009Q2

REPORT INFORMATION
  Report Type: 
  Country: None (occurrence: None)
  Receive Date: 20090409
  Receipt Date: 20090330
  Transmission Date: 20091009
  Serious: Yes (Hospitalization, Other)
  Sender: FDA-Public Use
  Company Number: AR-PFIZER INC-2009190831

PATIENT

DRUGS (2)
  1. LYRICA [Suspect]
     Indication: OSTEOARTHRITIS
     Dosage: 75 MG, UNK
     Route: 048
     Dates: start: 20090327
  2. ALL OTHER THERAPEUTIC PRODUCTS [Suspect]
     Indication: OSTEOARTHRITIS
     Dosage: UNK
     Dates: start: 20090327

REACTIONS (6)
  - DYSPHEMIA [None]
  - EYELID OEDEMA [None]
  - GAIT DISTURBANCE [None]
  - NECK PAIN [None]
  - OCULAR HYPERAEMIA [None]
  - VISION BLURRED [None]
